FAERS Safety Report 5376351-3 (Version None)
Quarter: 2007Q2

REPORT INFORMATION
  Report Type: 
  Country: None (occurrence: None)
  Receive Date: 20070627
  Receipt Date: 20070627
  Transmission Date: 20071010
  Serious: Yes (Other)
  Sender: FDA-Public Use
  Company Number: None

PATIENT
  Age: 56 Year
  Sex: Female
  Weight: 71 kg

DRUGS (6)
  1. ISOVUE-300 [Suspect]
     Dosage: 130 ML
  2. ALENDRONATE SODIUM [Concomitant]
  3. LEVOTHYROXINE SODIUM [Concomitant]
  4. FLUTICASONE/SALMETEROL [Concomitant]
  5. OMEPRAZOLE [Concomitant]
  6. FEXOFENADINE [Concomitant]

REACTIONS (3)
  - CONTRAST MEDIA REACTION [None]
  - PRURITUS [None]
  - THROAT TIGHTNESS [None]
